FAERS Safety Report 9813034 (Version 1)
Quarter: 2014Q1

REPORT INFORMATION
  Report Type: Spontaneous
  Country: JP (occurrence: JP)
  Receive Date: 20140113
  Receipt Date: 20140113
  Transmission Date: 20141002
  Serious: Yes (Other)
  Sender: FDA-Public Use
  Company Number: JP-ASTELLAS-2014JP000237

PATIENT
  Sex: 0

DRUGS (7)
  1. PROGRAF [Suspect]
     Indication: PROPHYLAXIS AGAINST GRAFT VERSUS HOST DISEASE
     Route: 065
  2. GRANULOCYTE COLONY-STIMULATING FACTOR NOS [Concomitant]
     Indication: MISMATCHED DONOR BONE MARROW TRANSPLANTATION THERAPY
     Route: 065
  3. ATG                                /00575402/ [Concomitant]
     Indication: T-CELL DEPLETION
     Route: 065
  4. ATG                                /00575402/ [Concomitant]
     Indication: PREMEDICATION
  5. METHOTREXATE [Concomitant]
     Indication: PROPHYLAXIS AGAINST GRAFT VERSUS HOST DISEASE
     Route: 065
  6. INFLIXIMAB [Concomitant]
     Route: 065
  7. DACLIZUMAB [Concomitant]
     Route: 065

REACTIONS (2)
  - Drug ineffective [Unknown]
  - Graft versus host disease [Recovered/Resolved]
